FAERS Safety Report 9054114 (Version 1)
Quarter: 2013Q1

REPORT INFORMATION
  Report Type: Spontaneous
  Country: US (occurrence: US)
  Receive Date: 20130208
  Receipt Date: 20130208
  Transmission Date: 20140127
  Serious: Yes (Hospitalization, Other)
  Sender: FDA-Public Use
  Company Number: US-PFIZER INC-2013048980

PATIENT
  Age: 65 Year
  Sex: Male

DRUGS (4)
  1. INLYTA [Suspect]
     Indication: RENAL CANCER
     Dosage: 5 MG, 2X/DAY
     Route: 048
     Dates: start: 20130102
  2. INLYTA [Suspect]
     Dosage: UNK
     Route: 048
     Dates: start: 20130107
  3. ASPIRIN [Concomitant]
     Indication: ANTICOAGULANT THERAPY
     Dosage: 325 MG, DAILY
  4. AVASTIN [Concomitant]
     Dosage: UNK

REACTIONS (6)
  - Epistaxis [Recovered/Resolved]
  - Pharyngeal haemorrhage [Unknown]
  - Blood pressure increased [Not Recovered/Not Resolved]
  - Stomatitis [Not Recovered/Not Resolved]
  - Disease progression [Unknown]
  - Renal cancer [Unknown]
